FAERS Safety Report 8127968-4 (Version None)
Quarter: 2012Q1

REPORT INFORMATION
  Report Type: 
  Country: None (occurrence: None)
  Receive Date: 20120210
  Receipt Date: 20110822
  Transmission Date: 20120608
  Serious: No
  Sender: FDA-Public Use
  Company Number: US-GLAXOSMITHKLINE-A0920712A

PATIENT
  Age: 59 Year
  Sex: Female

DRUGS (3)
  1. NO CONCURRENT MEDICATION [Concomitant]
  2. PAXIL CR [Suspect]
     Indication: DEPRESSION
     Dosage: 37.5MG PER DAY
     Route: 048
     Dates: start: 20010101
  3. PAROXETINE [Suspect]
     Route: 048

REACTIONS (3)
  - PRODUCT QUALITY ISSUE [None]
  - DRUG INEFFECTIVE [None]
  - THIRST [None]
